FAERS Safety Report 19225922 (Version 1)
Quarter: 2021Q2

REPORT INFORMATION
  Report Type: Spontaneous
  Country: FR (occurrence: FR)
  Receive Date: 20210506
  Receipt Date: 20210506
  Transmission Date: 20210717
  Serious: Yes (Hospitalization)
  Sender: FDA-Public Use
  Company Number: NVSC2021FR094000

PATIENT
  Age: 94 Year
  Sex: Male

DRUGS (11)
  1. OMIX [Concomitant]
     Active Substance: TAMSULOSIN HYDROCHLORIDE
     Indication: PROSTATE CANCER
     Dosage: 0.4 MG, QD (1/JOUR)
     Route: 048
     Dates: start: 20090101
  2. XARELTO [Suspect]
     Active Substance: RIVAROXABAN
     Indication: ATRIAL FIBRILLATION
     Dosage: 15 MG, QD (1/JOUR)
     Route: 048
     Dates: start: 20180901, end: 20210320
  3. TAHOR [Interacting]
     Active Substance: ATORVASTATIN CALCIUM
     Indication: DYSLIPIDAEMIA
     Dosage: 20 MG, QD (1/JOUR)
     Route: 048
     Dates: start: 20120601
  4. PAROXETINE. [Interacting]
     Active Substance: PAROXETINE
     Indication: DEPRESSION
     Dosage: 20 MG, QD (1/JOUR)
     Route: 048
     Dates: start: 20210318, end: 20210320
  5. OMEPRAZOLE. [Concomitant]
     Active Substance: OMEPRAZOLE
     Indication: GASTRIC ULCER
     Dosage: 1 DF, QD (1/JOUR)
     Route: 048
     Dates: start: 20090101
  6. INNOHEP [Concomitant]
     Active Substance: TINZAPARIN SODIUM
     Indication: THROMBOSIS PROPHYLAXIS
     Dosage: 1 DF, QD (1/JOUR)
     Route: 058
     Dates: start: 20210326
  7. PREDNISOLONE BIOGARAN [Suspect]
     Active Substance: PREDNISOLONE
     Indication: PAIN
     Dosage: 10 MG, QD (10 MG LE MATIN)
     Route: 048
     Dates: start: 20210318, end: 20210320
  8. IXPRIM [Concomitant]
     Active Substance: ACETAMINOPHEN\TRAMADOL HYDROCHLORIDE
     Indication: PAIN
     Dosage: 1 DF, QD (1/JOUR)
     Route: 048
     Dates: start: 20130901
  9. FUROSEMIDE. [Suspect]
     Active Substance: FUROSEMIDE
     Indication: MYOCARDIAL ISCHAEMIA
     Dosage: 40 MG, QD (1/JOUR)
     Route: 048
     Dates: start: 20190629
  10. MOLSIDOMINE [Concomitant]
     Active Substance: MOLSIDOMINE
     Indication: MYOCARDIAL ISCHAEMIA
     Dosage: 6 MG, QD (2 MGX3/JOUR (1?1?1))
     Route: 048
     Dates: start: 20100326
  11. METOPROLOL. [Concomitant]
     Active Substance: METOPROLOL
     Indication: MYOCARDIAL ISCHAEMIA
     Dosage: 100 MG, QD (1/JOUR)
     Route: 048
     Dates: start: 20191201

REACTIONS (1)
  - Rectal haemorrhage [Recovered/Resolved]

NARRATIVE: CASE EVENT DATE: 20210320
